FAERS Safety Report 4367389-3 (Version None)
Quarter: 2004Q2

REPORT INFORMATION
  Report Type: 
  Country: None (occurrence: None)
  Receive Date: 20040528
  Receipt Date: 20040528
  Transmission Date: 20050107
  Serious: No
  Sender: FDA-Public Use
  Company Number: None

PATIENT

DRUGS (1)
  1. SENNA SYRUP/MAJOR PHARMA 8.8 MG/5 ML [Suspect]
     Indication: LAXATIVE SUPPORTIVE CARE

REACTIONS (2)
  - MEDICATION ERROR [None]
  - PHARMACEUTICAL PRODUCT COUNTERFEIT [None]
